FAERS Safety Report 7425724-3 (Version None)
Quarter: 2011Q2

REPORT INFORMATION
  Report Type: 
  Country: None (occurrence: None)
  Receive Date: 20110420
  Receipt Date: 20110415
  Transmission Date: 20111010
  Serious: Yes (Hospitalization, Other)
  Sender: FDA-Public Use
  Company Number: US-BRISTOL-MYERS SQUIBB COMPANY-15678683

PATIENT
  Age: 15 Year
  Sex: Male

DRUGS (4)
  1. DEPAKOTE [Suspect]
  2. ABILIFY [Suspect]
     Indication: AUTISM
  3. ABILIFY [Suspect]
     Indication: INTERMITTENT EXPLOSIVE DISORDER
  4. ABILIFY [Suspect]
     Indication: IMPULSE-CONTROL DISORDER

REACTIONS (5)
  - URINARY TRACT INFECTION [None]
  - TIC [None]
  - LETHARGY [None]
  - PLATELET COUNT DECREASED [None]
  - FOOT FRACTURE [None]
